FAERS Safety Report 10557625 (Version 1)
Quarter: 2014Q4

REPORT INFORMATION
  Report Type: Spontaneous
  Country: GB (occurrence: GB)
  Receive Date: 20141031
  Receipt Date: 20141031
  Transmission Date: 20150529
  Serious: Yes (Hospitalization, Disabling, Other)
  Sender: FDA-Public Use
  Company Number: GB-TEVA-517334ISR

PATIENT
  Age: 65 Year
  Sex: Male
  Weight: 92.07 kg

DRUGS (6)
  1. ALLOPURINOL. [Concomitant]
     Active Substance: ALLOPURINOL
  2. BENDROFLUAZIDE [Concomitant]
     Active Substance: BENDROFLUMETHIAZIDE
  3. SALBUTAMOL [Concomitant]
     Active Substance: ALBUTEROL
  4. LISINOPRIL. [Concomitant]
     Active Substance: LISINOPRIL
  5. CIPROFLOXACIN. [Suspect]
     Active Substance: CIPROFLOXACIN
     Indication: BIOPSY PROSTATE
     Dosage: 1000 MILLIGRAM DAILY;
     Route: 048
  6. MUCODYNE [Concomitant]
     Active Substance: CARBOCYSTEINE

REACTIONS (23)
  - Syncope [Recovered/Resolved]
  - Delusion [Recovered/Resolved]
  - Malaise [Not Recovered/Not Resolved]
  - Dizziness [Recovered/Resolved]
  - Paraesthesia [Recovered/Resolved]
  - Balance disorder [Recovered/Resolved]
  - Gait disturbance [Recovered/Resolved]
  - Disorientation [Recovered/Resolved]
  - Thirst [Recovered/Resolved]
  - Memory impairment [Recovered/Resolved with Sequelae]
  - Anxiety [Recovering/Resolving]
  - Hallucination [Recovered/Resolved]
  - Bradycardia [Recovered/Resolved with Sequelae]
  - Temperature intolerance [Recovering/Resolving]
  - Tremor [Recovering/Resolving]
  - Sweat gland disorder [Recovering/Resolving]
  - Blood urine present [Recovered/Resolved]
  - Dysarthria [Recovered/Resolved]
  - Dyspnoea [Recovered/Resolved]
  - Fatigue [Recovered/Resolved with Sequelae]
  - Diplopia [Recovered/Resolved]
  - Seizure [Recovered/Resolved]
  - Tachycardia [Recovered/Resolved with Sequelae]

NARRATIVE: CASE EVENT DATE: 20120505
